FAERS Safety Report 5189552-4 (Version None)
Quarter: 2006Q4

REPORT INFORMATION
  Report Type: 
  Country: None (occurrence: None)
  Receive Date: 20061221
  Receipt Date: 20060606
  Transmission Date: 20070319
  Serious: No
  Sender: FDA-Public Use
  Company Number: US-AMGEN-KDL182093

PATIENT
  Sex: Female

DRUGS (2)
  1. ENBREL [Suspect]
     Indication: RHEUMATOID ARTHRITIS
     Route: 058
     Dates: start: 20060206
  2. METHOTREXATE [Concomitant]
     Dates: start: 20050101

REACTIONS (8)
  - CONSTIPATION [None]
  - FEELING HOT [None]
  - INJECTION SITE REACTION [None]
  - PARAESTHESIA [None]
  - RASH PAPULAR [None]
  - RASH PRURITIC [None]
  - SKIN DISCOLOURATION [None]
  - URTICARIA [None]
